FAERS Safety Report 9956069 (Version 1)
Quarter: 2014Q1

REPORT INFORMATION
  Report Type: Report from Study
  Country: US (occurrence: US)
  Receive Date: 20140304
  Receipt Date: 20140304
  Transmission Date: 20141002
  Serious: No
  Sender: FDA-Public Use
  Company Number: US-ABBVIE-13P-163-1090261-00

PATIENT
  Age: 20 Year
  Sex: Female

DRUGS (10)
  1. HUMIRA [Suspect]
     Indication: COLITIS ULCERATIVE
     Dates: start: 20130405
  2. ASACOL [Concomitant]
     Indication: COLITIS ULCERATIVE
     Dates: start: 2008
  3. FOLIC ACID [Concomitant]
     Indication: COLITIS ULCERATIVE
     Dates: start: 2008
  4. MULTIVITAMIN [Concomitant]
     Indication: NUTRITIONAL SUPPLEMENTATION
     Dates: start: 2008
  5. PENTASA [Concomitant]
     Indication: COLITIS ULCERATIVE
     Dates: start: 2011
  6. PROBIOTIC [Concomitant]
     Indication: COLITIS ULCERATIVE
     Dosage: 1 PACKET DAILY
     Dates: start: 2012
  7. IMURAN [Concomitant]
     Indication: COLITIS ULCERATIVE
     Dates: start: 201301
  8. IRON [Concomitant]
     Indication: HAEMOGLOBIN
     Dates: start: 201301
  9. IRON [Concomitant]
     Indication: COLITIS ULCERATIVE
  10. PREDNISONE [Concomitant]
     Indication: COLITIS
     Dosage: 2.5MG DAILY/TAPERING DOWN TO COMPLETION DATE OF 17 MAY 2013
     Dates: end: 20130517

REACTIONS (3)
  - Injection site papule [Recovered/Resolved]
  - Injection site erythema [Recovered/Resolved]
  - Pruritus [Unknown]
